FAERS Safety Report 11165382 (Version 1)
Quarter: 2015Q2

REPORT INFORMATION
  Report Type: Spontaneous
  Country: US (occurrence: None)
  Receive Date: 20150603
  Receipt Date: 20150603
  Transmission Date: 20150821
  Serious: Yes (Disabling)
  Sender: FDA-Public Use
  Company Number: None

PATIENT
  Age: 33 Year
  Sex: Female
  Weight: 61.69 kg

DRUGS (7)
  1. MAGNESIUM [Concomitant]
     Active Substance: MAGNESIUM
  2. VITAMIN C [Concomitant]
     Active Substance: ASCORBIC ACID
  3. B VITAMINS [Concomitant]
     Active Substance: CYANOCOBALAMIN\DEXPANTHENOL\NIACINAMIDE\PYRIDOXINE HYDROCHLORIDE\RIBOFLAVIN 5^-PHOSPHATE SODIUM\THIAMINE HYDROCHLORIDE\VITAMIN B COMPLEX
  4. POTASSIUM [Concomitant]
     Active Substance: POTASSIUM
  5. OPTIMARK [Suspect]
     Active Substance: GADOVERSETAMIDE
     Indication: NUCLEAR MAGNETIC RESONANCE IMAGING
     Dosage: 14 ML  ONE TIME INJECTION INTO A VEIN
     Route: 042
     Dates: start: 20150219
  6. OPTIMARK [Suspect]
     Active Substance: GADOVERSETAMIDE
     Indication: SCAN WITH CONTRAST
     Dosage: 14 ML  ONE TIME INJECTION INTO A VEIN
     Route: 042
     Dates: start: 20150219
  7. CALCIUM [Concomitant]
     Active Substance: CALCIUM

REACTIONS (21)
  - Cold sweat [None]
  - Formication [None]
  - Fatigue [None]
  - Muscle twitching [None]
  - Fear [None]
  - Malaise [None]
  - Dizziness [None]
  - Palpitations [None]
  - Paraesthesia [None]
  - Feeling abnormal [None]
  - Pain [None]
  - Cardiovascular disorder [None]
  - Vitreous floaters [None]
  - Hypoaesthesia [None]
  - Rash [None]
  - Frustration [None]
  - Peripheral coldness [None]
  - Insomnia [None]
  - Muscle spasms [None]
  - Muscular weakness [None]
  - Eye pain [None]

NARRATIVE: CASE EVENT DATE: 20150219
